FAERS Safety Report 7226196-4 (Version None)
Quarter: 2011Q1

REPORT INFORMATION
  Report Type: 
  Country: None (occurrence: None)
  Receive Date: 20110114
  Receipt Date: 20101230
  Transmission Date: 20110831
  Serious: Yes (Other)
  Sender: FDA-Public Use
  Company Number: PHHY2010CN89343

PATIENT
  Sex: Male

DRUGS (1)
  1. LOTENSIN [Suspect]

REACTIONS (1)
  - COUGH [None]
